FAERS Safety Report 7641390-6 (Version None)
Quarter: 2011Q3

REPORT INFORMATION
  Report Type: 
  Country: None (occurrence: None)
  Receive Date: 20110728
  Receipt Date: 20110719
  Transmission Date: 20111222
  Serious: Yes (Hospitalization)
  Sender: FDA-Public Use
  Company Number: KP-ASTRAZENECA-2011SE31805

PATIENT
  Age: 25669 Day
  Sex: Male

DRUGS (8)
  1. ASPIRIN [Concomitant]
     Route: 048
  2. LOSARTAN POTASSIUM [Concomitant]
     Indication: HYPERTENSION
     Route: 048
  3. NEBIVOLOL [Concomitant]
     Indication: MYOCARDIAL INFARCTION
     Route: 048
     Dates: start: 20110331
  4. CLOPIDOGREL [Suspect]
     Route: 048
     Dates: start: 20110601
  5. ATORVASTATIN [Concomitant]
     Indication: HYPERCHOLESTEROLAEMIA
     Route: 048
  6. CLOPIDOGREL [Suspect]
     Indication: CORONARY ARTERY DISEASE
     Route: 048
     Dates: start: 20110428, end: 20110520
  7. RANITIDINE [Concomitant]
     Indication: GASTRITIS
     Route: 048
  8. NEBIVOLOL [Concomitant]
     Indication: HYPERTENSION
     Route: 048
     Dates: start: 20110331

REACTIONS (1)
  - GASTRIC ULCER [None]
